FAERS Safety Report 10177196 (Version 2)
Quarter: 2014Q2

REPORT INFORMATION
  Report Type: Report from Study
  Country: US (occurrence: US)
  Receive Date: 20140516
  Receipt Date: 20140624
  Transmission Date: 20141212
  Serious: Yes (Hospitalization)
  Sender: FDA-Public Use
  Company Number: US-PFIZER INC-2014130015

PATIENT
  Age: 39 Year
  Sex: Female
  Weight: 67.1 kg

DRUGS (10)
  1. DOXORUBICIN HCL [Suspect]
     Indication: SARCOMA METASTATIC
     Dosage: CYCLIC
     Route: 040
     Dates: start: 20131114
  2. DOXORUBICIN HCL [Suspect]
     Dosage: 138 MG (75 MG/M2), CYCLIC, CYCLE 6
     Route: 040
     Dates: start: 20140226
  3. PROCHLORPERAZINE [Concomitant]
     Dosage: UNK
     Dates: start: 20131114
  4. LORAZEPAM [Concomitant]
     Dosage: UNK
     Dates: start: 20131114
  5. DEXAMETHASONE [Concomitant]
     Dosage: UNK
     Dates: start: 20131114, end: 20140303
  6. ONDANSETRON [Concomitant]
     Dosage: UNK
     Dates: start: 20131114, end: 20140226
  7. IBUPROFEN [Concomitant]
     Dosage: UNK
     Dates: start: 20131218
  8. ALPRAZOLAM [Concomitant]
     Dosage: UNK
     Dates: start: 2013
  9. SERTRALINE [Concomitant]
     Dosage: UNK
     Dates: start: 2013
  10. NEULASTA [Concomitant]
     Dosage: UNK
     Dates: start: 20140227, end: 20140227

REACTIONS (2)
  - Dehydration [Recovered/Resolved]
  - Syncope [Recovered/Resolved]
